FAERS Safety Report 6682767-5 (Version None)
Quarter: 2010Q2

REPORT INFORMATION
  Report Type: 
  Country: None (occurrence: None)
  Receive Date: 20100415
  Receipt Date: 20100406
  Transmission Date: 20101027
  Serious: Yes (Other)
  Sender: FDA-Public Use
  Company Number: US-PFIZER INC-2010027619

PATIENT
  Sex: Female
  Weight: 68.934 kg

DRUGS (3)
  1. GEODON [Suspect]
     Indication: BIPOLAR DISORDER
     Dosage: 40 MG AT BEDTIME DAILY
     Route: 048
     Dates: start: 20100312, end: 20100101
  2. GEODON [Suspect]
     Indication: ATTENTION DEFICIT/HYPERACTIVITY DISORDER
     Dosage: 2 X 40 MG
     Route: 048
     Dates: start: 20100312, end: 20100101
  3. VALIUM [Concomitant]
     Indication: SLEEP DISORDER
     Dosage: 5 MG AT BEDTIME AS NEEDED

REACTIONS (3)
  - DROOLING [None]
  - GAIT DISTURBANCE [None]
  - STRESS [None]
